FAERS Safety Report 8210605-8 (Version None)
Quarter: 2012Q1

REPORT INFORMATION
  Report Type: 
  Country: None (occurrence: None)
  Receive Date: 20120314
  Receipt Date: 20120227
  Transmission Date: 20120608
  Serious: Yes (Other)
  Sender: FDA-Public Use
  Company Number: RU-ASTRAZENECA-2012SE16755

PATIENT
  Age: 23885 Day
  Sex: Female
  Weight: 85 kg

DRUGS (3)
  1. ATACAND HCT [Suspect]
     Indication: HYPERTENSION
     Dosage: 16 MG/12.5 MG, 1 DF EVERY DAY
     Route: 048
     Dates: end: 20120101
  2. ATACAND HCT [Suspect]
     Route: 048
  3. ATACAND HCT [Suspect]
     Route: 048

REACTIONS (2)
  - DRUG INEFFECTIVE [None]
  - BLOOD PRESSURE INCREASED [None]
